FAERS Safety Report 5695726-6 (Version None)
Quarter: 2008Q2

REPORT INFORMATION
  Report Type: 
  Country: None (occurrence: None)
  Receive Date: 20080403
  Receipt Date: 20080325
  Transmission Date: 20081010
  Serious: Yes (Other)
  Sender: FDA-Public Use
  Company Number: 2008006139

PATIENT
  Age: 43 Year
  Weight: 100 kg

DRUGS (2)
  1. NICORETTE [Suspect]
     Dosage: 15-20 4MG GUM DAILY (4 MG), ORAL
     Route: 048
     Dates: start: 20040701
  2. NICOTINE [Suspect]
     Dosage: TRANSDERMAL
     Route: 062

REACTIONS (3)
  - DRUG DEPENDENCE [None]
  - SALIVARY HYPERSECRETION [None]
  - THROAT IRRITATION [None]
